FAERS Safety Report 10937584 (Version 2)
Quarter: 2015Q2

REPORT INFORMATION
  Report Type: Spontaneous
  Country: US (occurrence: US)
  Receive Date: 20150321
  Receipt Date: 20150525
  Transmission Date: 20150821
  Serious: No
  Sender: FDA-Public Use
  Company Number: US-JNJFOC-20130804553

PATIENT
  Age: 37 Year
  Sex: Male
  Weight: 108.86 kg

DRUGS (2)
  1. STELARA [Suspect]
     Active Substance: USTEKINUMAB
     Indication: PSORIASIS
     Dosage: 90MG/EVERY 3 MONTHS/SUBCUTANEOUS
     Route: 058
     Dates: start: 201201
  2. AMOXICILLIN. [Concomitant]
     Active Substance: AMOXICILLIN
     Indication: NASOPHARYNGITIS
     Dosage: TABLETS/ UNSPECIFIED/ EVERY 12 HOURS/ ORAL
     Route: 048
     Dates: start: 20130801, end: 20130807

REACTIONS (3)
  - Drug dose omission [Not Recovered/Not Resolved]
  - Inappropriate schedule of drug administration [Recovered/Resolved]
  - Psoriasis [Not Recovered/Not Resolved]

NARRATIVE: CASE EVENT DATE: 2013
